FAERS Safety Report 6232614-0 (Version None)
Quarter: 2009Q2

REPORT INFORMATION
  Report Type: 
  Country: None (occurrence: None)
  Receive Date: 20090615
  Receipt Date: 20090526
  Transmission Date: 20091009
  Serious: Yes (Other)
  Sender: FDA-Public Use
  Company Number: 8047222

PATIENT
  Age: 54 Year
  Sex: Female
  Weight: 92.25 kg

DRUGS (3)
  1. TUSSIONEX [Suspect]
     Indication: BRONCHITIS
     Dosage: 5 ML PRN PO
     Route: 048
     Dates: start: 20090507, end: 20090507
  2. TUSSIONEX [Suspect]
     Indication: COUGH
     Dosage: 5 ML PRN PO
     Route: 048
     Dates: start: 20090507, end: 20090507
  3. MULTI-VITAMIN [Concomitant]

REACTIONS (7)
  - ARRHYTHMIA [None]
  - CYANOSIS [None]
  - HYPOTENSION [None]
  - MYOCARDIAL INFARCTION [None]
  - NAUSEA [None]
  - SOMNOLENCE [None]
  - TACHYCARDIA [None]
